FAERS Safety Report 14703443 (Version 1)
Quarter: 2018Q2

REPORT INFORMATION
  Report Type: Spontaneous
  Country: US (occurrence: US)
  Receive Date: 20180402
  Receipt Date: 20180402
  Transmission Date: 20180711
  Serious: No
  Sender: FDA-Public Use
  Company Number: US-BAYER-2018-062885

PATIENT
  Age: 85 Year
  Sex: Female
  Weight: 59.41 kg

DRUGS (1)
  1. MIRALAX [Suspect]
     Active Substance: POLYETHYLENE GLYCOL 3350
     Indication: GASTROINTESTINAL DISORDER
     Dosage: 1 DF (CAPFUL), 3 TIMES PER DAY
     Route: 048
     Dates: start: 20180328, end: 2018

REACTIONS (1)
  - Product use issue [Unknown]
